FAERS Safety Report 17966856 (Version 1)
Quarter: 2020Q2

REPORT INFORMATION
  Report Type: Spontaneous
  Country: US (occurrence: US)
  Receive Date: 20200629
  Receipt Date: 20200629
  Transmission Date: 20200714
  Serious: Yes (Hospitalization)
  Sender: FDA-Public Use
  Company Number: None

PATIENT
  Age: 62 Year
  Sex: Female

DRUGS (1)
  1. HUMIRA [Suspect]
     Active Substance: ADALIMUMAB
     Indication: RHEUMATOID ARTHRITIS
     Dosage: OTHER DOSE:40/0.4 MG/ML; EVERY 14 DAYS ?
     Route: 058
     Dates: start: 201912

REACTIONS (2)
  - Ulcer [None]
  - Therapy interrupted [None]

NARRATIVE: CASE EVENT DATE: 20200526
